FAERS Safety Report 8613338-9 (Version None)
Quarter: 2012Q3

REPORT INFORMATION
  Report Type: 
  Country: None (occurrence: None)
  Receive Date: 20120822
  Receipt Date: 20120806
  Transmission Date: 20120928
  Serious: Yes (Hospitalization, Other)
  Sender: FDA-Public Use
  Company Number: US-009507513-1203USA00307

PATIENT

DRUGS (3)
  1. FOSAMAX [Suspect]
     Indication: OSTEOPOROSIS
     Dosage: 10 MG, QD
     Route: 048
     Dates: start: 20000101, end: 20010101
  2. FOSAMAX [Suspect]
     Dosage: 70 MG, QW
     Route: 048
     Dates: start: 20010101, end: 20050501
  3. OLAY COMPLETE WOMAN'S MULTIVITAMIN 50+ [Concomitant]
     Dosage: 1 DF, QD
     Dates: end: 20120227

REACTIONS (4)
  - FEMUR FRACTURE [None]
  - PAIN [None]
  - DEPRESSION [None]
  - ANXIETY [None]
